FAERS Safety Report 5858770-1 (Version None)
Quarter: 2008Q3

REPORT INFORMATION
  Report Type: 
  Country: None (occurrence: None)
  Receive Date: 20080825
  Receipt Date: 20080811
  Transmission Date: 20090109
  Serious: Yes (Hospitalization)
  Sender: FDA-Public Use
  Company Number: 032500

PATIENT
  Age: 44 Year
  Sex: Female

DRUGS (1)
  1. SULFAMETHOXAZOLE AND TRIMETHOPRIM (SILFAMETHOXAZOLE, TRIMETHOPRIM) TAB [Suspect]
     Indication: SINUSITIS

REACTIONS (2)
  - ACUTE FEBRILE NEUTROPHILIC DERMATOSIS [None]
  - GRANULOCYTES MATURATION ARREST [None]
